FAERS Safety Report 20201036 (Version 1)
Quarter: 2021Q4

REPORT INFORMATION
  Report Type: Spontaneous
  Country: GB (occurrence: GB)
  Receive Date: 20211217
  Receipt Date: 20211217
  Transmission Date: 20220304
  Serious: Yes (Hospitalization, Other)
  Sender: FDA-Public Use
  Company Number: GB-SAMSUNG BIOEPIS-SB-2021-29058

PATIENT
  Age: 55 Year
  Sex: Male

DRUGS (2)
  1. ETANERCEPT [Suspect]
     Active Substance: ETANERCEPT
     Indication: Psoriatic arthropathy
     Dosage: UNKNOWN
     Route: 065
  2. CIMZIA [Suspect]
     Active Substance: CERTOLIZUMAB PEGOL
     Indication: Psoriatic arthropathy
     Dosage: UNKNOWN
     Route: 065

REACTIONS (6)
  - Renal failure [Unknown]
  - Azotaemia [Unknown]
  - Seizure [Unknown]
  - Sarcoidosis [Unknown]
  - Psoriatic arthropathy [Unknown]
  - Renal hypertension [Unknown]
